FAERS Safety Report 4572010-5 (Version None)
Quarter: 2005Q1

REPORT INFORMATION
  Report Type: 
  Country: None (occurrence: None)
  Receive Date: 20050203
  Receipt Date: 20050203
  Transmission Date: 20050727
  Serious: Yes (Other)
  Sender: FDA-Public Use
  Company Number: None

PATIENT
  Age: 68 Year
  Sex: Female
  Weight: 62.5964 kg

DRUGS (2)
  1. FOSAMAX [Suspect]
     Indication: OSTEOLYSIS
     Dosage: 1 WEEK (70)
  2. TRICOR [Suspect]
     Indication: BLOOD PRESSURE
     Dosage: 1 DAY (5)

REACTIONS (1)
  - ALOPECIA [None]
